FAERS Safety Report 5643086-9 (Version None)
Quarter: 2008Q1

REPORT INFORMATION
  Report Type: 
  Country: None (occurrence: None)
  Receive Date: 20080228
  Receipt Date: 20080220
  Transmission Date: 20080703
  Serious: Yes (Death, Life-Threatening, Hospitalization, Other)
  Sender: FDA-Public Use
  Company Number: US-MERCK-0802USA05328

PATIENT
  Age: 56 Year
  Sex: Male

DRUGS (8)
  1. PRINIVIL [Suspect]
     Route: 048
  2. TOPROL-XL [Suspect]
     Route: 048
  3. SUNITINIB MALATE [Suspect]
     Indication: BLADDER TRANSITIONAL CELL CARCINOMA
     Route: 048
     Dates: start: 20061206, end: 20071017
  4. BEVACIZUMAB [Suspect]
     Indication: BLADDER TRANSITIONAL CELL CARCINOMA
     Route: 042
     Dates: start: 20061206, end: 20071008
  5. NORVASC [Suspect]
     Route: 065
  6. OXYCODONE [Concomitant]
     Route: 065
  7. CELEXA [Concomitant]
     Route: 065
  8. NASONEX [Concomitant]
     Route: 065

REACTIONS (14)
  - ACIDOSIS [None]
  - ALANINE AMINOTRANSFERASE INCREASED [None]
  - ANOREXIA [None]
  - ASPARTATE AMINOTRANSFERASE INCREASED [None]
  - BLOOD BILIRUBIN INCREASED [None]
  - DEHYDRATION [None]
  - FATIGUE [None]
  - GASTROINTESTINAL NECROSIS [None]
  - HYPERKALAEMIA [None]
  - HYPOTENSION [None]
  - HYPOVOLAEMIA [None]
  - INTUSSUSCEPTION [None]
  - RENAL FAILURE ACUTE [None]
  - RESPIRATORY FAILURE [None]
